FAERS Safety Report 18302037 (Version 1)
Quarter: 2020Q3

REPORT INFORMATION
  Report Type: Spontaneous
  Country: US (occurrence: US)
  Receive Date: 20200923
  Receipt Date: 20200923
  Transmission Date: 20201103
  Serious: Yes (Other)
  Sender: FDA-Public Use
  Company Number: US-PFIZER INC-2020366649

PATIENT

DRUGS (1)
  1. HYDROCORTISONE. [Suspect]
     Active Substance: HYDROCORTISONE
     Dosage: 5 MG

REACTIONS (4)
  - Optic nerve compression [Not Recovered/Not Resolved]
  - Arthralgia [Unknown]
  - Brain neoplasm [Not Recovered/Not Resolved]
  - Blindness [Not Recovered/Not Resolved]
